FAERS Safety Report 20910828 (Version 2)
Quarter: 2023Q4

REPORT INFORMATION
  Report Type: Spontaneous
  Country: US (occurrence: US)
  Receive Date: 20220603
  Receipt Date: 20231122
  Transmission Date: 20240109
  Serious: Yes (Other)
  Sender: FDA-Public Use
  Company Number: US-AMNEAL PHARMACEUTICALS-2022-AMRX-01585

PATIENT
  Sex: Female

DRUGS (1)
  1. RYTARY [Suspect]
     Active Substance: CARBIDOPA\LEVODOPA
     Indication: Product used for unknown indication
     Dosage: 48.75/195MG 2 CAPSULE THREE TIMES A DAY AND 3 CAPSULE AT NIGHT
     Route: 048

REACTIONS (3)
  - Lower limb fracture [Unknown]
  - Thrombosis [Unknown]
  - Dysphagia [Unknown]
